FAERS Safety Report 7654121-0 (Version None)
Quarter: 2011Q3

REPORT INFORMATION
  Report Type: 
  Country: None (occurrence: None)
  Receive Date: 20110803
  Receipt Date: 20110728
  Transmission Date: 20111222
  Serious: Yes (Disabling, Other)
  Sender: FDA-Public Use
  Company Number: PHHO2011US13007

PATIENT
  Age: 46 Year
  Sex: Male
  Weight: 140 kg

DRUGS (9)
  1. LASIX [Concomitant]
     Dosage: UNK
  2. VITAMIN D [Concomitant]
     Dosage: UNK
  3. PROBENECID [Concomitant]
     Dosage: UNK
  4. SANDIMMUNE [Suspect]
     Indication: IMMUNOSUPPRESSION
     Dosage: UNK
  5. VITAMIN B-12 [Concomitant]
     Dosage: UNK
  6. IMURAN [Concomitant]
     Dosage: UNK
  7. MEDROL [Suspect]
     Indication: INFLAMMATION
     Dosage: 4 MG, BID
     Route: 048
     Dates: start: 19790101
  8. FOLIC ACID [Concomitant]
     Dosage: UNK
  9. ZANTAC [Concomitant]
     Dosage: UNK

REACTIONS (2)
  - PERIPHERAL ARTERIAL OCCLUSIVE DISEASE [None]
  - BLOOD CHOLESTEROL INCREASED [None]
